FAERS Safety Report 9807999 (Version 1)
Quarter: 2014Q1

REPORT INFORMATION
  Report Type: Spontaneous
  Country: JP (occurrence: JP)
  Receive Date: 20140110
  Receipt Date: 20140110
  Transmission Date: 20141002
  Serious: Yes (Hospitalization)
  Sender: FDA-Public Use
  Company Number: JP-009507513-1401JPN002336

PATIENT
  Age: 49 Year
  Sex: Female
  Weight: 70 kg

DRUGS (9)
  1. TRYPTANOL [Suspect]
     Indication: MIGRAINE
     Dosage: 10 MG, TID
     Route: 048
     Dates: start: 20131021, end: 20131105
  2. SELENICA R [Concomitant]
     Indication: MIGRAINE
     Dosage: 400 MG, QD
     Route: 048
     Dates: end: 20131003
  3. MAXALT [Concomitant]
     Dosage: UNK
     Route: 048
  4. ALPRAZOLAM [Concomitant]
     Dosage: UNK
     Route: 048
  5. NAIXAN [Concomitant]
     Dosage: UNK
     Route: 048
  6. REBAMIPIDE [Concomitant]
     Dosage: UNK
     Route: 048
  7. PROTECADIN [Concomitant]
     Dosage: UNK
     Route: 048
  8. TERRANAS TABLETS 5 [Concomitant]
     Route: 048
  9. FUTHAN [Concomitant]
     Indication: PANCREATITIS ACUTE
     Dosage: UNK
     Route: 041
     Dates: start: 20131003

REACTIONS (1)
  - Liver disorder [Recovering/Resolving]
